FAERS Safety Report 9747676 (Version 1)
Quarter: 2013Q4

REPORT INFORMATION
  Report Type: Spontaneous
  Country: US (occurrence: None)
  Receive Date: 20131206
  Receipt Date: 20131206
  Transmission Date: 20140711
  Serious: Yes (Hospitalization, Disabling)
  Sender: FDA-Public Use
  Company Number: ACET20130037

PATIENT
  Age: 50 Year
  Sex: Female

DRUGS (4)
  1. Q-PAP [Suspect]
     Indication: PAIN
     Dosage: 6000 MG, 6 IN 1 D, ORAL
     Route: 048
  2. NITROFURANTOIN [Concomitant]
     Indication: URINARY TRACT INFECTION
     Route: 048
  3. VICODIN (PARACETAMOL, HYDROCODONE, BITARTRATE) (TABLETS) (PARACETAMOL, HYDROCODONE BITARTRATE) [Concomitant]
  4. DILAUDID (HYDROMORPHONE HYDROCHLORIDE) TABLETS) (HYDROMORPHONE HYDROCHLORIDE) [Concomitant]

REACTIONS (6)
  - Cholestatic liver injury [None]
  - Hepatic fibrosis [None]
  - Acute hepatic failure [None]
  - Malnutrition [None]
  - Pneumonia [None]
  - Neuropathy peripheral [None]
